FAERS Safety Report 8048242-0 (Version None)
Quarter: 2012Q1

REPORT INFORMATION
  Report Type: 
  Country: None (occurrence: None)
  Receive Date: 20120117
  Receipt Date: 20120109
  Transmission Date: 20120608
  Serious: Yes (Hospitalization)
  Sender: FDA-Public Use
  Company Number: US-BAYER-2011-038807

PATIENT
  Age: 31 Year
  Sex: Female
  Weight: 61.224 kg

DRUGS (4)
  1. FLUOXETINE [Concomitant]
     Route: 048
  2. DROSPIRENONE AND ETHINYL ESTRADIOL [Suspect]
     Indication: ORAL CONTRACEPTION
     Dosage: UNK
     Route: 048
     Dates: start: 20090201, end: 20090901
  3. MOTRIN [Concomitant]
     Indication: MUSCULOSKELETAL CHEST PAIN
     Dosage: UNK UNK, PRN
  4. YASMIN [Suspect]
     Indication: ORAL CONTRACEPTION
     Dosage: UNK UNK, QD
     Route: 048
     Dates: start: 20081001, end: 20090915

REACTIONS (3)
  - THROMBOSIS [None]
  - INJURY [None]
  - PULMONARY EMBOLISM [None]
